FAERS Safety Report 7289838-3 (Version None)
Quarter: 2011Q1

REPORT INFORMATION
  Report Type: 
  Country: None (occurrence: None)
  Receive Date: 20110214
  Receipt Date: 20110204
  Transmission Date: 20110831
  Serious: No
  Sender: FDA-Public Use
  Company Number: US-BIOGENIDEC-2011BI004485

PATIENT
  Sex: Female

DRUGS (4)
  1. AVONEX [Suspect]
     Indication: MULTIPLE SCLEROSIS
     Route: 030
     Dates: start: 20110108
  2. AVONEX [Suspect]
     Route: 030
     Dates: start: 20050220
  3. AVONEX [Suspect]
     Route: 030
     Dates: start: 20010129, end: 20030507
  4. COPAXONE [Concomitant]
     Indication: MULTIPLE SCLEROSIS

REACTIONS (3)
  - INJECTION SITE HAEMATOMA [None]
  - DYSPNOEA [None]
  - SKIN EXFOLIATION [None]
